FAERS Safety Report 25489926 (Version 1)
Quarter: 2025Q2

REPORT INFORMATION
  Report Type: Other
  Country: US (occurrence: US)
  Receive Date: 20250628
  Receipt Date: 20250628
  Transmission Date: 20250716
  Serious: Yes (Hospitalization, Other)
  Sender: Kanchan Healthcare
  Company Number: US-Kanchan Healthcare INC-2179542

PATIENT
  Age: 92 Year
  Sex: Male

DRUGS (1)
  1. BETAMETHASONE VALERATE [Suspect]
     Active Substance: BETAMETHASONE VALERATE
     Indication: Analgesic therapy

REACTIONS (2)
  - Syncope [Recovered/Resolved]
  - Product use in unapproved indication [Unknown]
